FAERS Safety Report 18043721 (Version 2)
Quarter: 2020Q3

REPORT INFORMATION
  Report Type: Spontaneous
  Country: AU (occurrence: AU)
  Receive Date: 20200720
  Receipt Date: 20200819
  Transmission Date: 20201103
  Serious: Yes (Other)
  Sender: FDA-Public Use
  Company Number: AU-NOVOPROD-740679

PATIENT
  Age: 77 Year
  Sex: Male
  Weight: 105 kg

DRUGS (4)
  1. LANTUS [Suspect]
     Active Substance: INSULIN GLARGINE
     Indication: TYPE 2 DIABETES MELLITUS
     Dosage: UNK (DAILY DOSE: 32 AM)
     Route: 058
     Dates: start: 2018
  2. NOVORAPID [Suspect]
     Active Substance: INSULIN ASPART
     Dosage: UNK (32 UNITS)
     Route: 058
     Dates: start: 20200708
  3. NOVORAPID [Suspect]
     Active Substance: INSULIN ASPART
     Indication: TYPE 2 DIABETES MELLITUS
     Dosage: UNK (DAILY DOSE: 12 AM, 12 PM)
     Route: 058
     Dates: start: 2018
  4. NOVORAPID [Suspect]
     Active Substance: INSULIN ASPART
     Dosage: UNK (DAILY DOSE: 12 AM, 12 PM)
     Route: 058
     Dates: start: 20200709

REACTIONS (3)
  - Dysarthria [Recovered/Resolved]
  - Dyspnoea [Recovered/Resolved]
  - Wrong product administered [Recovered/Resolved]

NARRATIVE: CASE EVENT DATE: 20200708
